FAERS Safety Report 20005705 (Version 1)
Quarter: 2021Q4

REPORT INFORMATION
  Report Type: Spontaneous
  Country: US (occurrence: US)
  Receive Date: 20211028
  Receipt Date: 20211028
  Transmission Date: 20220303
  Serious: Yes (Death)
  Sender: FDA-Public Use
  Company Number: None

PATIENT
  Age: 43 Year
  Sex: Male
  Weight: 78 kg

DRUGS (3)
  1. BARICITINIB [Suspect]
     Active Substance: BARICITINIB
     Indication: COVID-19
     Dates: start: 20210822, end: 20210823
  2. REMDESIVIR [Concomitant]
     Active Substance: REMDESIVIR
     Dates: start: 20210821, end: 20210822
  3. DEXAMETHASONE [Concomitant]
     Active Substance: DEXAMETHASONE
     Dates: start: 20210822, end: 20210822

REACTIONS (8)
  - Anxiety [None]
  - Cardiac arrest [None]
  - Pulseless electrical activity [None]
  - Atrioventricular block complete [None]
  - Hypotension [None]
  - Acute myocardial infarction [None]
  - Bundle branch block right [None]
  - Oxygen saturation decreased [None]

NARRATIVE: CASE EVENT DATE: 20210824
